FAERS Safety Report 13799993 (Version 7)
Quarter: 2025Q3

REPORT INFORMATION
  Report Type: Spontaneous
  Country: US (occurrence: US)
  Receive Date: 20170727
  Receipt Date: 20250912
  Transmission Date: 20251021
  Serious: Yes (Life-Threatening, Hospitalization, Other)
  Sender: PFIZER
  Company Number: US-MLMSERVICE-20170718-0813801-1

PATIENT
  Age: 84 Year
  Sex: Male

DRUGS (3)
  1. DOCETAXEL [Interacting]
     Active Substance: DOCETAXEL
     Indication: Hormone-refractory prostate cancer
  2. ENZALUTAMIDE [Interacting]
     Active Substance: ENZALUTAMIDE
     Indication: Hormone-refractory prostate cancer
  3. DABIGATRAN [Interacting]
     Active Substance: DABIGATRAN
     Indication: Anticoagulant therapy
     Dosage: 150 MG, 1X/DAY

REACTIONS (2)
  - Drug interaction [Recovered/Resolved]
  - Pericardial haemorrhage [Recovered/Resolved]
